FAERS Safety Report 7681628-2 (Version None)
Quarter: 2011Q3

REPORT INFORMATION
  Report Type: 
  Country: None (occurrence: None)
  Receive Date: 20110812
  Receipt Date: 20110808
  Transmission Date: 20111222
  Serious: Yes (Life-Threatening, Hospitalization, Other)
  Sender: FDA-Public Use
  Company Number: PHHY2009CA37260

PATIENT
  Sex: Male

DRUGS (2)
  1. ZOMETA [Suspect]
     Indication: PROSTATE CANCER
     Dosage: 4 MG, QMO
     Route: 042
     Dates: start: 20080328
  2. ZOMETA [Suspect]
     Dosage: 4 MG, EVERY FOUR WEEKS
     Route: 042

REACTIONS (15)
  - RED BLOOD CELL COUNT DECREASED [None]
  - PROTEIN URINE PRESENT [None]
  - BLOOD LACTATE DEHYDROGENASE INCREASED [None]
  - WHITE BLOOD CELLS URINE POSITIVE [None]
  - BLOOD TESTOSTERONE DECREASED [None]
  - BLOOD PRESSURE INCREASED [None]
  - HAEMOGLOBIN DECREASED [None]
  - RED BLOOD CELLS URINE POSITIVE [None]
  - TERMINAL STATE [None]
  - MEAN CELL HAEMOGLOBIN CONCENTRATION DECREASED [None]
  - BLOOD SODIUM DECREASED [None]
  - PROSTATIC SPECIFIC ANTIGEN INCREASED [None]
  - HAEMATOCRIT DECREASED [None]
  - MEAN CELL HAEMOGLOBIN DECREASED [None]
  - LYMPHOCYTE COUNT DECREASED [None]
